FAERS Safety Report 12913488 (Version 2)
Quarter: 2016Q4

REPORT INFORMATION
  Report Type: Report from Study
  Country: US (occurrence: US)
  Receive Date: 20161104
  Receipt Date: 20161219
  Transmission Date: 20170207
  Serious: Yes (Hospitalization, Other)
  Sender: FDA-Public Use
  Company Number: US-GILEAD-2016-0241490

PATIENT
  Age: 71 Year
  Sex: Female

DRUGS (20)
  1. METOPROLOL. [Concomitant]
     Active Substance: METOPROLOL
  2. NITROGLYCERINE [Concomitant]
     Active Substance: NITROGLYCERIN
  3. LAMICTAL [Concomitant]
     Active Substance: LAMOTRIGINE
  4. MELATONIN [Concomitant]
     Active Substance: MELATONIN
  5. POTASSIUM [Concomitant]
     Active Substance: POTASSIUM
  6. SPIRONOLACTONE. [Concomitant]
     Active Substance: SPIRONOLACTONE
  7. FOLIC ACID. [Concomitant]
     Active Substance: FOLIC ACID
  8. FUROSEMIDE. [Concomitant]
     Active Substance: FUROSEMIDE
  9. HYDROCODONE BITARTRATE AND ACETAMINOPHEN [Concomitant]
     Active Substance: ACETAMINOPHEN\HYDROCODONE BITARTRATE
  10. LOVASTATIN. [Concomitant]
     Active Substance: LOVASTATIN
  11. CLARITIN [Concomitant]
     Active Substance: LORATADINE
  12. BACLOFEN. [Concomitant]
     Active Substance: BACLOFEN
  13. ALBUTEROL                          /00139501/ [Concomitant]
     Active Substance: ALBUTEROL
  14. PRILOSEC [Concomitant]
     Active Substance: OMEPRAZOLE MAGNESIUM
  15. AMBRISENTAN [Suspect]
     Active Substance: AMBRISENTAN
     Indication: PULMONARY HYPERTENSION
     Dosage: 10 MG, QD
     Route: 065
     Dates: start: 20140707
  16. ADVAIR HFA [Concomitant]
     Active Substance: FLUTICASONE PROPIONATE\SALMETEROL XINAFOATE
  17. CALCIUM [Concomitant]
     Active Substance: CALCIUM
  18. VENLAFAXINE [Concomitant]
     Active Substance: VENLAFAXINE HYDROCHLORIDE
  19. BABY ASPIRIN [Concomitant]
     Active Substance: ASPIRIN
  20. VITAMIN D                          /00107901/ [Concomitant]
     Active Substance: ERGOCALCIFEROL

REACTIONS (3)
  - Fall [Recovered/Resolved]
  - Cataract [Unknown]
  - Fractured coccyx [Unknown]

NARRATIVE: CASE EVENT DATE: 20161031
